FAERS Safety Report 8813718 (Version 1)
Quarter: 2012Q4

REPORT INFORMATION
  Report Type: 
  Country: US (occurrence: US)
  Receive Date: 20120928
  Receipt Date: 20120928
  Transmission Date: 20130627
  Serious: Yes (Other)
  Sender: FDA-Public Use
  Company Number: US-ROCHE-537362

PATIENT
  Age: 55 Year
  Sex: Male
  Weight: 113.4 kg

DRUGS (12)
  1. ACCUTANE [Suspect]
     Indication: ACNE CYSTIC
     Route: 065
  2. ACCUTANE [Suspect]
     Route: 065
     Dates: start: 20030414, end: 20030903
  3. LOPID [Concomitant]
     Indication: BLOOD TRIGLYCERIDES INCREASED
     Route: 065
  4. HYZAAR [Concomitant]
     Indication: HYPERTENSION
  5. HYTRIN [Concomitant]
     Indication: HYPERTENSION
     Route: 065
  6. NORVASC [Concomitant]
     Indication: HYPERTENSION
  7. ALLOPURINOL [Concomitant]
     Indication: GOUT
  8. UNIPHYL [Concomitant]
     Indication: ASTHMA
  9. QVAR [Concomitant]
     Indication: ASTHMA
  10. ALLEGRA [Concomitant]
     Indication: RHINITIS ALLERGIC
  11. NASACORT [Concomitant]
     Indication: HYPERSENSITIVITY
  12. PEPCID [Concomitant]
     Indication: DYSPEPSIA

REACTIONS (17)
  - Proctitis ulcerative [Unknown]
  - Inflammatory bowel disease [Unknown]
  - Colitis [Unknown]
  - Proctitis [Unknown]
  - Emotional distress [Not Recovered/Not Resolved]
  - Crohn^s disease [Unknown]
  - Large intestine polyp [Unknown]
  - Lip dry [Unknown]
  - Dry eye [Unknown]
  - Arthralgia [Unknown]
  - Epistaxis [Unknown]
  - Leukopenia [Unknown]
  - Dry skin [Unknown]
  - Skin fragility [Unknown]
  - Impaired healing [Unknown]
  - Headache [Unknown]
  - Myalgia [Unknown]
